FAERS Safety Report 20158126 (Version 1)
Quarter: 2021Q4

REPORT INFORMATION
  Report Type: Spontaneous
  Country: US (occurrence: US)
  Receive Date: 20211207
  Receipt Date: 20211207
  Transmission Date: 20220303
  Serious: No
  Sender: FDA-Public Use
  Company Number: US-SA-SAC20211130000694

PATIENT
  Age: 54 Year
  Sex: Female

DRUGS (9)
  1. DUPIXENT [Suspect]
     Active Substance: DUPILUMAB
     Indication: Dermatitis atopic
     Dosage: 300 MG, QOW
     Route: 058
     Dates: start: 20210914
  2. SSD [Concomitant]
     Active Substance: SILVER SULFADIAZINE
  3. PREDNISONE [Concomitant]
     Active Substance: PREDNISONE
  4. PHENTERMINE [Concomitant]
     Active Substance: PHENTERMINE
  5. LEVOFLOXACIN [Concomitant]
     Active Substance: LEVOFLOXACIN
  6. FLOVENT [Concomitant]
     Active Substance: FLUTICASONE PROPIONATE
  7. PROAIR HFA [Concomitant]
     Active Substance: ALBUTEROL SULFATE
  8. NICOTINE [Concomitant]
     Active Substance: NICOTINE
  9. HYDROCHLOROTHIAZIDE [Concomitant]
     Active Substance: HYDROCHLOROTHIAZIDE

REACTIONS (2)
  - Insomnia [Not Recovered/Not Resolved]
  - Dermatitis atopic [Not Recovered/Not Resolved]
